FAERS Safety Report 14036066 (Version 1)
Quarter: 2017Q4

REPORT INFORMATION
  Report Type: Spontaneous
  Country: US (occurrence: US)
  Receive Date: 20171003
  Receipt Date: 20171003
  Transmission Date: 20180321
  Serious: No
  Sender: FDA-Public Use
  Company Number: US-ROCHE-1930555

PATIENT
  Sex: Female
  Weight: 59.02 kg

DRUGS (1)
  1. ZELBORAF [Suspect]
     Active Substance: VEMURAFENIB
     Indication: THYROID CANCER
     Dosage: TAKE 4 TABLETS TWICE A DAY
     Route: 048
     Dates: start: 20170405

REACTIONS (3)
  - Nausea [Unknown]
  - Diarrhoea [Unknown]
  - Skin papilloma [Unknown]
